FAERS Safety Report 4548072-8 (Version None)
Quarter: 2005Q1

REPORT INFORMATION
  Report Type: 
  Country: None (occurrence: None)
  Receive Date: 20050105
  Receipt Date: 20050105
  Transmission Date: 20050727
  Serious: Yes (Hospitalization)
  Sender: FDA-Public Use
  Company Number: None

PATIENT
  Age: 58 Year
  Sex: Male
  Weight: 107.9561 kg

DRUGS (8)
  1. GEMCITABINE [Suspect]
     Indication: BLADDER CANCER
     Dosage: 800 MG/M2   D1,D8 Q  21 D INTRAVENOUS
     Route: 042
     Dates: start: 20041018, end: 20041210
  2. PACLITAXEL [Suspect]
     Indication: BLADDER CANCER
     Dosage: 80 MG/M2   D1,D8 Q  21 D INTRAVENOUS
     Route: 042
     Dates: start: 20041018, end: 20041210
  3. VICODIN [Concomitant]
  4. DESTRIL [Concomitant]
  5. ANUSOL HC [Concomitant]
  6. PROCRIT [Concomitant]
  7. MV [Concomitant]
  8. IRON [Concomitant]

REACTIONS (1)
  - DEEP VEIN THROMBOSIS [None]
